FAERS Safety Report 17012778 (Version 1)
Quarter: 2019Q4

REPORT INFORMATION
  Report Type: Spontaneous
  Country: US (occurrence: US)
  Receive Date: 20191109
  Receipt Date: 20191109
  Transmission Date: 20200122
  Serious: No
  Sender: FDA-Public Use
  Company Number: US-009507513-1910USA013059

PATIENT
  Age: 80 Year
  Sex: Female

DRUGS (3)
  1. ASMANEX [Suspect]
     Active Substance: MOMETASONE FUROATE
     Dosage: STRENGTH: 220 MCG, 30 DOSE, ONCE DAILY
     Route: 055
     Dates: start: 20191001
  2. ASMANEX [Suspect]
     Active Substance: MOMETASONE FUROATE
     Dosage: STRENGTH: 220 MCG, 30 DOSE, ONCE DAILY
     Route: 055
     Dates: end: 2018
  3. ASMANEX [Suspect]
     Active Substance: MOMETASONE FUROATE
     Dosage: STRENGTH: 220 MCG, 30 DOSE, ONCE DAILY
     Route: 055
     Dates: end: 2019

REACTIONS (4)
  - Bronchitis [Recovered/Resolved]
  - Bronchitis [Recovered/Resolved]
  - Poor quality device used [Unknown]
  - Product quality issue [Unknown]

NARRATIVE: CASE EVENT DATE: 201812
